FAERS Safety Report 4898577-5 (Version None)
Quarter: 2006Q1

REPORT INFORMATION
  Report Type: 
  Country: None (occurrence: None)
  Receive Date: 20060130
  Receipt Date: 20060120
  Transmission Date: 20060701
  Serious: Yes (Hospitalization, Other)
  Sender: FDA-Public Use
  Company Number: 2006-01-1157

PATIENT
  Age: 54 Year
  Sex: Male
  Weight: 105 kg

DRUGS (3)
  1. PEG-INTRON [Suspect]
     Indication: MALIGNANT MELANOMA
     Dosage: 100 MCG
     Dates: start: 20031223, end: 20050922
  2. VANCOMYCIN [Suspect]
  3. FLUINDIONE [Suspect]

REACTIONS (3)
  - CARDIAC DISORDER [None]
  - DRUG HYPERSENSITIVITY [None]
  - MYOPERICARDITIS [None]
